FAERS Safety Report 6306461-5 (Version None)
Quarter: 2009Q3

REPORT INFORMATION
  Report Type: 
  Country: None (occurrence: None)
  Receive Date: 20090810
  Receipt Date: 20090730
  Transmission Date: 20100115
  Serious: Yes (Other)
  Sender: FDA-Public Use
  Company Number: 2009SP014692

PATIENT
  Age: 59 Year
  Sex: Female

DRUGS (17)
  1. PEG-INTRON [Suspect]
     Indication: HEPATITIS C
     Dosage: ; SC
     Route: 058
     Dates: start: 20090625
  2. RIBAVIRIN [Suspect]
     Indication: HEPATITIS C
     Dosage: ; PO
     Route: 048
     Dates: start: 20090624
  3. ACTONEL [Concomitant]
  4. EFFEXOR [Concomitant]
  5. PHENERGAN [Concomitant]
  6. RETIN-A [Concomitant]
  7. TRAMADOL HCL [Concomitant]
  8. VICODIN [Concomitant]
  9. MAGNESIUM [Concomitant]
  10. FISH OIL [Concomitant]
  11. COZAAR [Concomitant]
  12. CRANBERRY JUICE [Concomitant]
  13. BIOTIN [Concomitant]
  14. ASCORBIC ACID [Concomitant]
  15. TRAZODONE HCL [Concomitant]
  16. MIRALAX [Concomitant]
  17. COLACE [Concomitant]

REACTIONS (4)
  - GASTROENTERITIS [None]
  - HYPOVOLAEMIA [None]
  - VISION BLURRED [None]
  - WHITE BLOOD CELL COUNT DECREASED [None]
